FAERS Safety Report 19766678 (Version 1)
Quarter: 2021Q3

REPORT INFORMATION
  Report Type: Spontaneous
  Country: CA (occurrence: CA)
  Receive Date: 20210830
  Receipt Date: 20210830
  Transmission Date: 20211014
  Serious: Yes (Disabling)
  Sender: FDA-Public Use
  Company Number: None

PATIENT
  Age: 29 Year

DRUGS (1)
  1. BETAMETHASONE VALERATE. [Suspect]
     Active Substance: BETAMETHASONE VALERATE
     Indication: ECZEMA

REACTIONS (5)
  - Dry skin [None]
  - Skin exfoliation [None]
  - Immobile [None]
  - Erythema [None]
  - Nerve injury [None]

NARRATIVE: CASE EVENT DATE: 20210616
